FAERS Safety Report 8016269-0 (Version None)
Quarter: 2011Q4

REPORT INFORMATION
  Report Type: 
  Country: None (occurrence: None)
  Receive Date: 20111230
  Receipt Date: 20111227
  Transmission Date: 20120403
  Serious: Yes (Hospitalization)
  Sender: FDA-Public Use
  Company Number: US-MERCK-1110USA03839

PATIENT
  Age: 77 Year
  Sex: Female

DRUGS (7)
  1. VITAMINS (UNSPECIFIED) [Concomitant]
     Route: 065
     Dates: start: 19900101
  2. VITAMIN B (UNSPECIFIED) [Concomitant]
     Route: 065
     Dates: start: 19900101
  3. ASCORBIC ACID [Concomitant]
     Route: 065
     Dates: start: 19900101
  4. CALCIUM (UNSPECIFIED) [Concomitant]
     Route: 065
     Dates: start: 19900101
  5. PROTONIX [Concomitant]
     Route: 065
     Dates: end: 20080101
  6. NEXIUM [Concomitant]
     Route: 065
     Dates: end: 20080101
  7. FOSAMAX [Suspect]
     Indication: OSTEOPOROSIS
     Route: 048
     Dates: end: 20090501

REACTIONS (3)
  - HYPERTENSION [None]
  - PELVIC FRACTURE [None]
  - FEMUR FRACTURE [None]
